FAERS Safety Report 7195875-X (Version None)
Quarter: 2010Q4

REPORT INFORMATION
  Report Type: 
  Country: None (occurrence: None)
  Receive Date: 20101223
  Receipt Date: 20101011
  Transmission Date: 20110411
  Serious: No
  Sender: FDA-Public Use
  Company Number: US-AMGEN INC.-KDL444838

PATIENT

DRUGS (1)
  1. ENBREL [Suspect]
     Indication: PSORIATIC ARTHROPATHY
     Dosage: 50 MG, QWK
     Route: 058
     Dates: start: 20101004

REACTIONS (6)
  - DIZZINESS [None]
  - FATIGUE [None]
  - INJECTION SITE MACULE [None]
  - INJECTION SITE PAIN [None]
  - MYALGIA [None]
  - OROPHARYNGEAL PAIN [None]
